FAERS Safety Report 4528928-2 (Version None)
Quarter: 2004Q4

REPORT INFORMATION
  Report Type: 
  Country: None (occurrence: None)
  Receive Date: 20041214
  Receipt Date: 20041207
  Transmission Date: 20050328
  Serious: Yes (Life-Threatening)
  Sender: FDA-Public Use
  Company Number: 200410663BYL

PATIENT
  Age: 51 Year
  Sex: Male
  Weight: 94 kg

DRUGS (4)
  1. ADALAT [Suspect]
     Indication: SUICIDE ATTEMPT
     Dosage: 520 MG, TOTAL DAILY, ORAL
     Route: 048
     Dates: start: 20041204
  2. DOXAZOSIN MESYLATE [Suspect]
     Indication: SUICIDE ATTEMPT
     Dosage: 52 MG, TOTAL DAILY, ORAL
     Route: 048
     Dates: start: 20041204
  3. TANATRIL (IMIDAPRIL HYDROCHLORIDE) [Suspect]
     Indication: SUICIDE ATTEMPT
     Dosage: 170 MG, TOTAL DAILY, ORAL
     Route: 048
     Dates: start: 20041204
  4. ALDOMET [Suspect]
     Indication: SUICIDE ATTEMPT
     Dosage: 13.5 G, TOTAL DAILY, ORAL
     Route: 048
     Dates: start: 20041204

REACTIONS (1)
  - MULTIPLE DRUG OVERDOSE INTENTIONAL [None]
